FAERS Safety Report 8483593 (Version 2)
Quarter: 2015Q4

REPORT INFORMATION
  Report Type: Spontaneous
  Country: US (occurrence: US)
  Receive Date: 20120329
  Receipt Date: 20151218
  Transmission Date: 20160305
  Serious: Yes (Other)
  Sender: FDA-Public Use
  Company Number: US-ROCHE-1022327

PATIENT
  Age: 13 Year
  Sex: Male
  Weight: 74.91 kg

DRUGS (4)
  1. FLAGYL [Concomitant]
     Active Substance: METRONIDAZOLE\METRONIDAZOLE HYDROCHLORIDE
  2. TRETINOIN. [Concomitant]
     Active Substance: TRETINOIN
     Route: 065
  3. TETRACYCLINE [Concomitant]
     Active Substance: TETRACYCLINE
  4. ACCUTANE [Suspect]
     Active Substance: ISOTRETINOIN
     Indication: ACNE
     Route: 048
     Dates: start: 1987, end: 199001

REACTIONS (6)
  - Perirectal abscess [Unknown]
  - Head injury [Unknown]
  - Lip dry [Unknown]
  - Crohn^s disease [Unknown]
  - Colitis ulcerative [Unknown]
  - Back pain [Unknown]

NARRATIVE: CASE EVENT DATE: 19891002
